FAERS Safety Report 24381526 (Version 1)
Quarter: 2024Q4

REPORT INFORMATION
  Report Type: Report from Study
  Country: US (occurrence: US)
  Receive Date: 20241001
  Receipt Date: 20241001
  Transmission Date: 20250115
  Serious: Yes (Other)
  Sender: UCB
  Company Number: US-UCBSA-2024036687

PATIENT
  Age: 72 Year
  Sex: Male

DRUGS (1)
  1. BRIVARACETAM [Suspect]
     Active Substance: BRIVARACETAM
     Indication: Seizure
     Dosage: 100 MILLIGRAM, 2X/DAY (BID)
     Dates: start: 202406

REACTIONS (3)
  - Skin cancer [Unknown]
  - Dizziness [Not Recovered/Not Resolved]
  - Cancer surgery [Unknown]

NARRATIVE: CASE EVENT DATE: 20240601
